FAERS Safety Report 5065899-7 (Version None)
Quarter: 2006Q3

REPORT INFORMATION
  Report Type: 
  Country: None (occurrence: None)
  Receive Date: 20060728
  Receipt Date: 20060728
  Transmission Date: 20061208
  Serious: Yes (Other)
  Sender: FDA-Public Use
  Company Number: None

PATIENT
  Age: 32 Year
  Sex: Female
  Weight: 68.0396 kg

DRUGS (1)
  1. FLUOXETINE [Suspect]
     Indication: DEPRESSION
     Dosage: 20 MG  DAILY  OPHTHALMIC
     Route: 047
     Dates: start: 20050705, end: 20060224

REACTIONS (1)
  - DRUG EXPOSURE DURING PREGNANCY [None]
